FAERS Safety Report 18405136 (Version 5)
Quarter: 2022Q1

REPORT INFORMATION
  Report Type: Spontaneous
  Country: US (occurrence: US)
  Receive Date: 20201020
  Receipt Date: 20220131
  Transmission Date: 20220424
  Serious: Yes (Hospitalization, Other)
  Sender: FDA-Public Use
  Company Number: US-PFIZER INC-2020405422

PATIENT
  Age: 96 Year
  Sex: Female
  Weight: 54.422 kg

DRUGS (3)
  1. IBRANCE [Suspect]
     Active Substance: PALBOCICLIB
     Indication: Breast cancer female
     Dosage: 100 MG, CYCLIC (DAILY FOR 21 DAYS, THEN 1 WEEK OFF)
     Route: 048
     Dates: start: 202010
  2. IBRANCE [Suspect]
     Active Substance: PALBOCICLIB
     Dosage: 100 MG, CYCLIC (DAILY FOR 21 DAYS, THEN 1 WEEK OFF)
     Route: 048
     Dates: start: 202010
  3. IBRANCE [Suspect]
     Active Substance: PALBOCICLIB
     Dosage: 75 MG, CYCLIC (DAILY FOR 21 DAYS, THEN 1 WEEK OFF)
     Route: 048
     Dates: start: 20210327

REACTIONS (7)
  - Femur fracture [Unknown]
  - Diarrhoea [Unknown]
  - Anal incontinence [Unknown]
  - Eye irritation [Unknown]
  - White blood cell count decreased [Unknown]
  - Alopecia [Unknown]
  - Full blood count abnormal [Unknown]

NARRATIVE: CASE EVENT DATE: 20200101
